FAERS Safety Report 9030914 (Version 3)
Quarter: 2013Q1

REPORT INFORMATION
  Report Type: Spontaneous
  Country: JP (occurrence: JP)
  Receive Date: 20130123
  Receipt Date: 20130304
  Transmission Date: 20140127
  Serious: Yes (Hospitalization)
  Sender: FDA-Public Use
  Company Number: JP-GE HEALTHCARE MEDICAL DIAGNOSTICS-MSTR-NO-1301S-0003

PATIENT
  Age: 65 Year
  Sex: Male

DRUGS (5)
  1. METASTRON [Suspect]
     Indication: METASTATIC PAIN
     Route: 042
     Dates: start: 20120906, end: 20120906
  2. METASTRON [Suspect]
     Indication: THERAPEUTIC PROCEDURE
     Dosage: DOSE NOT REPORTED
     Route: 042
     Dates: start: 20120119, end: 20120119
  3. METASTRON [Suspect]
     Dosage: DOSE NOT REPORTED
     Route: 042
     Dates: start: 20120511, end: 20120511
  4. ETOPOSIDE [Concomitant]
  5. PROSEXOL [Concomitant]

REACTIONS (2)
  - Pulmonary oedema [Recovered/Resolved]
  - Pancytopenia [Not Recovered/Not Resolved]
